FAERS Safety Report 14429780 (Version 1)
Quarter: 2018Q1

REPORT INFORMATION
  Report Type: Report from Study
  Country: US (occurrence: US)
  Receive Date: 20180123
  Receipt Date: 20180123
  Transmission Date: 20180509
  Serious: No
  Sender: FDA-Public Use
  Company Number: US-AMGEN-USASL2017182952

PATIENT
  Age: 67 Year
  Sex: Female

DRUGS (1)
  1. REPATHA [Suspect]
     Active Substance: EVOLOCUMAB
     Indication: BLOOD CHOLESTEROL INCREASED
     Dosage: 420 MG, QMO
     Route: 065

REACTIONS (6)
  - Malaise [Not Recovered/Not Resolved]
  - Pyrexia [Unknown]
  - Diarrhoea [Unknown]
  - Stress [Unknown]
  - Nasal congestion [Unknown]
  - Rhinorrhoea [Unknown]
